FAERS Safety Report 19850197 (Version 1)
Quarter: 2021Q3

REPORT INFORMATION
  Report Type: Report from Study
  Country: US (occurrence: US)
  Receive Date: 20210917
  Receipt Date: 20210917
  Transmission Date: 20211014
  Serious: Yes (Hospitalization)
  Sender: FDA-Public Use
  Company Number: US-BIOGEN-2021BI01049145

PATIENT
  Age: 38 Year
  Sex: Female

DRUGS (1)
  1. TYSABRI [Suspect]
     Active Substance: NATALIZUMAB
     Indication: MULTIPLE SCLEROSIS
     Route: 065
     Dates: start: 20210202

REACTIONS (4)
  - Cerebellar atrophy [Unknown]
  - Bone pain [Unknown]
  - Multiple sclerosis relapse [Unknown]
  - Band sensation [Unknown]

NARRATIVE: CASE EVENT DATE: 202106
